FAERS Safety Report 8431237-2 (Version None)
Quarter: 2012Q2

REPORT INFORMATION
  Report Type: 
  Country: None (occurrence: None)
  Receive Date: 20120613
  Receipt Date: 20120601
  Transmission Date: 20120825
  Serious: Yes (Hospitalization)
  Sender: FDA-Public Use
  Company Number: JP-AMGEN-JPNSP2012012121

PATIENT
  Age: 79 Year
  Sex: Female

DRUGS (1)
  1. ROMIPLATE [Suspect]
     Indication: IDIOPATHIC THROMBOCYTOPENIC PURPURA
     Route: 058
     Dates: start: 20111208

REACTIONS (3)
  - PLATELET COUNT DECREASED [None]
  - ANTIBODY TEST [None]
  - THERAPEUTIC RESPONSE DECREASED [None]
